FAERS Safety Report 8336261-6 (Version None)
Quarter: 2012Q2

REPORT INFORMATION
  Report Type: 
  Country: None (occurrence: None)
  Receive Date: 20120504
  Receipt Date: 20120426
  Transmission Date: 20120825
  Serious: Yes (Other)
  Sender: FDA-Public Use
  Company Number: US-PFIZER INC-2012104263

PATIENT

DRUGS (4)
  1. OXYBUTYNIN [Suspect]
     Dosage: UNK
  2. VESICARE [Suspect]
     Dosage: UNK
  3. DETROL LA [Suspect]
     Dosage: UNK
  4. DETROL [Suspect]
     Dosage: UNK

REACTIONS (8)
  - HAEMORRHOIDS [None]
  - FLATULENCE [None]
  - CONSTIPATION [None]
  - SEDATION [None]
  - CONFUSIONAL STATE [None]
  - DYSURIA [None]
  - ABDOMINAL PAIN UPPER [None]
  - DRY MOUTH [None]
